FAERS Safety Report 12309581 (Version 1)
Quarter: 2016Q2

REPORT INFORMATION
  Report Type: Other
  Country: US (occurrence: US)
  Receive Date: 20160427
  Receipt Date: 20160427
  Transmission Date: 20160815
  Serious: No
  Sender: FDA-Public Use
  Company Number: US-JEROME STEVENS PHARMACEUTICALS, INC.-1051062

PATIENT
  Age: 70 Year
  Sex: Female

DRUGS (1)
  1. LEVOTHYROXINE SODIUM. [Suspect]
     Active Substance: LEVOTHYROXINE SODIUM
     Indication: HYPOTHYROIDISM
     Route: 048
     Dates: start: 20160302, end: 20160314

REACTIONS (4)
  - Hyperhidrosis [None]
  - Palpitations [None]
  - Tachycardia [None]
  - Gastrooesophageal reflux disease [None]
